FAERS Safety Report 10869925 (Version 1)
Quarter: 2015Q1

REPORT INFORMATION
  Report Type: Spontaneous
  Country: FR (occurrence: FR)
  Receive Date: 20150226
  Receipt Date: 20150226
  Transmission Date: 20150721
  Serious: Yes (Hospitalization)
  Sender: FDA-Public Use
  Company Number: FR-JNJFOC-20150208805

PATIENT
  Age: 45 Year
  Sex: Female

DRUGS (5)
  1. PARKINANE [Concomitant]
     Active Substance: TRIHEXYPHENIDYL HYDROCHLORIDE
     Indication: PRODUCT USED FOR UNKNOWN INDICATION
     Route: 048
  2. HALDOL [Suspect]
     Active Substance: HALOPERIDOL
     Indication: SCHIZOPHRENIA
     Route: 030
  3. XANAX [Concomitant]
     Active Substance: ALPRAZOLAM
     Indication: PRODUCT USED FOR UNKNOWN INDICATION
     Route: 048
  4. LANSOYL [Concomitant]
     Active Substance: MINERAL OIL
     Indication: PRODUCT USED FOR UNKNOWN INDICATION
     Route: 048
  5. ZYPREXA [Suspect]
     Active Substance: OLANZAPINE
     Indication: SCHIZOPHRENIA
     Route: 048

REACTIONS (12)
  - Hyponatraemia [Recovered/Resolved]
  - Blood glucose increased [Recovered/Resolved]
  - Prerenal failure [Unknown]
  - Hyperphosphataemia [Unknown]
  - Hypotension [Recovered/Resolved]
  - Metabolic acidosis [Unknown]
  - Salpingitis [Unknown]
  - Constipation [Recovered/Resolved]
  - Hyperkalaemia [Unknown]
  - Dehydration [Unknown]
  - Hyperuricaemia [Unknown]
  - Hypocalcaemia [Unknown]

NARRATIVE: CASE EVENT DATE: 201411
